FAERS Safety Report 9247366 (Version 3)
Quarter: 2013Q2

REPORT INFORMATION
  Report Type: Spontaneous
  Country: US (occurrence: US)
  Receive Date: 20130423
  Receipt Date: 20130503
  Transmission Date: 20140414
  Serious: Yes (Other)
  Sender: FDA-Public Use
  Company Number: US-JNJFOC-20130310412

PATIENT
  Sex: Female

DRUGS (7)
  1. TOPAMAX [Suspect]
     Indication: MIGRAINE
     Route: 048
     Dates: start: 2007, end: 200802
  2. FOCALIN XR [Suspect]
     Indication: ATTENTION DEFICIT/HYPERACTIVITY DISORDER
     Route: 048
  3. FOCALIN XR [Suspect]
     Indication: ATTENTION DEFICIT/HYPERACTIVITY DISORDER
     Route: 048
  4. METOCLOPRAMIDE [Suspect]
     Indication: DYSPEPSIA
     Route: 065
  5. CLONAZEPAM [Suspect]
     Indication: ANXIETY
     Route: 065
  6. LEXAPRO [Suspect]
     Indication: DEPRESSION
     Route: 065
  7. KLONOPIN [Suspect]
     Indication: ANXIETY
     Route: 065

REACTIONS (2)
  - Emotional disorder [Unknown]
  - Exposure during pregnancy [Recovered/Resolved]
